FAERS Safety Report 22316779 (Version 1)
Quarter: 2023Q2

REPORT INFORMATION
  Report Type: Spontaneous
  Country: US (occurrence: US)
  Receive Date: 20230513
  Receipt Date: 20230513
  Transmission Date: 20230721
  Serious: No
  Sender: FDA-Public Use
  Company Number: US-BAYER-2023A066093

PATIENT
  Age: 82 Year
  Sex: Male

DRUGS (1)
  1. ASTEPRO [Suspect]
     Active Substance: AZELASTINE HYDROCHLORIDE
     Indication: Hypersensitivity
     Dosage: 2 DROPS IN EACH NOSTRIL AT NIGHT
     Route: 045
     Dates: start: 20230506, end: 20230509

REACTIONS (1)
  - Drug ineffective [Not Recovered/Not Resolved]
